FAERS Safety Report 15851578 (Version 1)
Quarter: 2019Q1

REPORT INFORMATION
  Report Type: Spontaneous
  Country: US (occurrence: US)
  Receive Date: 20190122
  Receipt Date: 20190122
  Transmission Date: 20190417
  Serious: No
  Sender: FDA-Public Use
  Company Number: US-ASTRAZENECA-2019SE06745

PATIENT
  Age: 21122 Day
  Sex: Male
  Weight: 124.7 kg

DRUGS (2)
  1. BYDUREON [Suspect]
     Active Substance: EXENATIDE
     Indication: TYPE 2 DIABETES MELLITUS
     Route: 058
     Dates: start: 20190108
  2. BYDUREON BCISE [Suspect]
     Active Substance: EXENATIDE
     Indication: TYPE 2 DIABETES MELLITUS
     Route: 058
     Dates: start: 2018

REACTIONS (4)
  - Injection site haemorrhage [Recovered/Resolved]
  - Product use issue [Recovered/Resolved]
  - Injection site pain [Recovered/Resolved]
  - Injection site pain [None]

NARRATIVE: CASE EVENT DATE: 20190108
